FAERS Safety Report 4355152-9 (Version None)
Quarter: 2004Q2

REPORT INFORMATION
  Report Type: 
  Country: None (occurrence: None)
  Receive Date: 20040510
  Receipt Date: 20040504
  Transmission Date: 20050107
  Serious: Yes (Hospitalization)
  Sender: FDA-Public Use
  Company Number: 200414702GDDC

PATIENT
  Age: 35 Year
  Sex: Female

DRUGS (1)
  1. DESMOPRESSIN [Suspect]
     Indication: ENURESIS
     Dosage: DOSE: UNK
     Route: 045
     Dates: end: 20030413

REACTIONS (8)
  - BLOOD CALCIUM DECREASED [None]
  - BLOOD MAGNESIUM DECREASED [None]
  - CONFUSIONAL STATE [None]
  - DIARRHOEA [None]
  - DISORIENTATION [None]
  - HYPONATRAEMIA [None]
  - INAPPROPRIATE ANTIDIURETIC HORMONE SECRETION [None]
  - VOMITING [None]
